FAERS Safety Report 20630064 (Version 2)
Quarter: 2022Q2

REPORT INFORMATION
  Report Type: Report from Study
  Country: CA (occurrence: CA)
  Receive Date: 20220324
  Receipt Date: 20220606
  Transmission Date: 20220721
  Serious: Yes (Death)
  Sender: FDA-Public Use
  Company Number: CA-ABBVIE-22K-028-4328269-00

PATIENT
  Age: 59 Year
  Sex: Female

DRUGS (1)
  1. RINVOQ [Suspect]
     Active Substance: UPADACITINIB
     Indication: Rheumatoid arthritis
     Route: 048
     Dates: start: 20200322

REACTIONS (2)
  - Cardiac arrest [Fatal]
  - Lung disorder [Fatal]

NARRATIVE: CASE EVENT DATE: 20220116
